FAERS Safety Report 24097575 (Version 2)
Quarter: 2024Q4

REPORT INFORMATION
  Report Type: Spontaneous
  Country: US (occurrence: US)
  Receive Date: 20240716
  Receipt Date: 20241010
  Transmission Date: 20250114
  Serious: Yes (Hospitalization)
  Sender: ELI LILLY AND CO
  Company Number: US-ELI_LILLY_AND_COMPANY-US202407007996

PATIENT
  Age: 65 Year
  Sex: Female
  Weight: 77.551 kg

DRUGS (3)
  1. VERZENIO [Suspect]
     Active Substance: ABEMACICLIB
     Indication: HER2 positive breast cancer
     Dosage: 150 MG, BID
     Route: 065
     Dates: start: 20240708, end: 20240711
  2. ANASTROZOLE [Suspect]
     Active Substance: ANASTROZOLE
     Indication: HER2 positive breast cancer
     Dosage: UNK, UNKNOWN
     Route: 065
     Dates: end: 20240711
  3. ANASTROZOLE [Suspect]
     Active Substance: ANASTROZOLE
     Dosage: UNK, UNKNOWN
     Route: 065
     Dates: start: 20240811

REACTIONS (6)
  - Dehydration [Recovering/Resolving]
  - Vomiting projectile [Recovering/Resolving]
  - Diarrhoea [Recovering/Resolving]
  - Presyncope [Unknown]
  - Illness [Unknown]
  - Colitis [Unknown]

NARRATIVE: CASE EVENT DATE: 20240711
